FAERS Safety Report 15757893 (Version 2)
Quarter: 2025Q3

REPORT INFORMATION
  Report Type: Spontaneous
  Country: EU (occurrence: EU)
  Receive Date: 20181225
  Receipt Date: 20250718
  Transmission Date: 20251021
  Serious: Yes (Death, Hospitalization, Other)
  Sender: AUROBINDO
  Company Number: EU-AUROBINDO-AUR-APL-2018-062326

PATIENT
  Age: 37 Year
  Sex: Female

DRUGS (6)
  1. CLOZAPINE [Suspect]
     Active Substance: CLOZAPINE
     Indication: Schizophrenia
     Route: 048
  2. CLOZAPINE [Suspect]
     Active Substance: CLOZAPINE
     Route: 065
  3. RISPERIDONE [Suspect]
     Active Substance: RISPERIDONE
     Indication: Product used for unknown indication
     Route: 048
  4. CLOZAPINE [Suspect]
     Active Substance: CLOZAPINE
     Indication: Schizophrenia
     Route: 048
  5. CISPLATIN [Concomitant]
     Active Substance: CISPLATIN
     Indication: Cervix carcinoma
     Route: 065
  6. CLOMIPRAMINE HYDROCHLORIDE [Concomitant]
     Active Substance: CLOMIPRAMINE HYDROCHLORIDE
     Indication: Product used for unknown indication
     Route: 048

REACTIONS (13)
  - Death [Fatal]
  - Pulmonary embolism [Fatal]
  - Metastatic neoplasm [Fatal]
  - Psychotic disorder [Recovered/Resolved]
  - Lymphadenopathy [Unknown]
  - Schizophrenia [Recovered/Resolved]
  - Diabetes mellitus [Unknown]
  - Malignant neoplasm of unknown primary site [Unknown]
  - Weight increased [Unknown]
  - Constipation [Unknown]
  - Obsessive-compulsive disorder [Recovered/Resolved]
  - Obesity [Unknown]
  - Cervix carcinoma [Recovered/Resolved]
